FAERS Safety Report 7411460-6 (Version None)
Quarter: 2011Q2

REPORT INFORMATION
  Report Type: 
  Country: None (occurrence: None)
  Receive Date: 20110413
  Receipt Date: 20110406
  Transmission Date: 20111010
  Serious: Yes (Other)
  Sender: FDA-Public Use
  Company Number: PHHY2011FR26480

PATIENT
  Age: 60 Year
  Sex: Female

DRUGS (3)
  1. AZILECT [Concomitant]
     Dosage: UNK
  2. VITAMIN K TAB [Concomitant]
     Dosage: UNK
  3. STALEVO 100 [Suspect]
     Indication: PARKINSON'S DISEASE
     Dosage: UNK

REACTIONS (2)
  - RASH PAPULAR [None]
  - TOXIC SKIN ERUPTION [None]
